FAERS Safety Report 16144366 (Version 1)
Quarter: 2019Q2

REPORT INFORMATION
  Report Type: Report from Study
  Country: None (occurrence: US)
  Receive Date: 20190401
  Receipt Date: 20190401
  Transmission Date: 20190711
  Serious: Yes (Hospitalization, Other)
  Sender: FDA-Public Use
  Company Number: US-ABBVIE-19S-163-2722021-00

PATIENT
  Age: 81 Year
  Sex: Male
  Weight: 56.3 kg

DRUGS (5)
  1. SYNTHROID [Concomitant]
     Active Substance: LEVOTHYROXINE SODIUM
     Indication: PRODUCT USED FOR UNKNOWN INDICATION
  2. GLIPIZIDE. [Concomitant]
     Active Substance: GLIPIZIDE
     Indication: DIABETES MELLITUS
  3. CREON [Suspect]
     Active Substance: PANCRELIPASE AMYLASE\PANCRELIPASE LIPASE\PANCRELIPASE PROTEASE
     Indication: PANCREATITIS CHRONIC
     Dosage: 1 CAPSULE WITH EACH MEAL
     Route: 048
     Dates: start: 2017, end: 20190319
  4. CREON [Suspect]
     Active Substance: PANCRELIPASE AMYLASE\PANCRELIPASE LIPASE\PANCRELIPASE PROTEASE
     Dosage: 4 CAPSULE WITH LUNCH AND DINNER
     Route: 048
     Dates: start: 20190320
  5. PANTOPRAZOLE [Concomitant]
     Active Substance: PANTOPRAZOLE
     Indication: DYSPEPSIA

REACTIONS (9)
  - Chromaturia [Recovering/Resolving]
  - Autoimmune disorder [Not Recovered/Not Resolved]
  - Fall [Recovered/Resolved]
  - Lethargy [Recovering/Resolving]
  - Liver injury [Not Recovered/Not Resolved]
  - Dehydration [Recovered/Resolved]
  - Asthenia [Not Recovered/Not Resolved]
  - Pancreatic disorder [Recovering/Resolving]
  - Ammonia increased [Recovered/Resolved]

NARRATIVE: CASE EVENT DATE: 201808
